FAERS Safety Report 4296464-7 (Version None)
Quarter: 2004Q1

REPORT INFORMATION
  Report Type: 
  Country: None (occurrence: None)
  Receive Date: 20040217
  Receipt Date: 20040205
  Transmission Date: 20041129
  Serious: Yes (Hospitalization)
  Sender: FDA-Public Use
  Company Number: US-BRISTOL-MYERS SQUIBB COMPANY-12496956

PATIENT
  Age: 65 Year
  Sex: Male
  Weight: 60 kg

DRUGS (7)
  1. TAXOL [Suspect]
     Indication: LARYNGEAL CANCER
     Route: 042
     Dates: start: 20040113, end: 20040113
  2. CARBOPLATIN [Suspect]
     Indication: LARYNGEAL CANCER
     Dosage: INITIAL DOSE: 09-DEC-2003
     Route: 042
     Dates: start: 20040113, end: 20040113
  3. IFOSFAMIDE [Suspect]
     Indication: LARYNGEAL CANCER
     Route: 042
     Dates: start: 20040113, end: 20040113
  4. MESNA [Suspect]
     Indication: LARYNGEAL CANCER
     Route: 042
     Dates: start: 20040113, end: 20040113
  5. VICODIN [Concomitant]
  6. PROCRIT [Concomitant]
  7. DECADRON [Concomitant]

REACTIONS (7)
  - ANAEMIA [None]
  - COUGH [None]
  - FATIGUE [None]
  - FEBRILE NEUTROPENIA [None]
  - HAEMATOCRIT DECREASED [None]
  - HAEMOGLOBIN DECREASED [None]
  - PULMONARY CONGESTION [None]
